FAERS Safety Report 18106887 (Version 2)
Quarter: 2020Q4

REPORT INFORMATION
  Report Type: Spontaneous
  Country: US (occurrence: US)
  Receive Date: 20200804
  Receipt Date: 20201201
  Transmission Date: 20210113
  Serious: Yes (Other)
  Sender: FDA-Public Use
  Company Number: US-GILEAD-2020-0485269

PATIENT
  Age: 33 Year
  Sex: Female

DRUGS (1)
  1. VIREAD [Suspect]
     Active Substance: TENOFOVIR DISOPROXIL FUMARATE
     Indication: HEPATITIS B
     Dosage: UNK
     Route: 048
     Dates: start: 20120408

REACTIONS (8)
  - Fanconi syndrome acquired [Unknown]
  - Bone loss [Unknown]
  - Tooth loss [Unknown]
  - Chronic kidney disease [Unknown]
  - Ankle fracture [Not Recovered/Not Resolved]
  - Osteonecrosis [Unknown]
  - Renal failure [Unknown]
  - Bone density decreased [Unknown]

NARRATIVE: CASE EVENT DATE: 20170219
